FAERS Safety Report 23836524 (Version 3)
Quarter: 2024Q2

REPORT INFORMATION
  Report Type: Spontaneous
  Country: US (occurrence: US)
  Receive Date: 20240509
  Receipt Date: 20240603
  Transmission Date: 20240716
  Serious: No
  Sender: FDA-Public Use
  Company Number: US-JNJFOC-20240521633

PATIENT
  Age: 43 Year
  Sex: Female

DRUGS (1)
  1. UPTRAVI [Suspect]
     Active Substance: SELEXIPAG
     Indication: Product used for unknown indication
     Route: 048

REACTIONS (8)
  - Adverse event [Unknown]
  - Headache [Unknown]
  - Pain [Unknown]
  - Rash [Unknown]
  - Eating disorder [Unknown]
  - Myalgia [Unknown]
  - Pain in jaw [Unknown]
  - Nausea [Unknown]
